FAERS Safety Report 9016258 (Version 1)
Quarter: 2013Q1

REPORT INFORMATION
  Report Type: Spontaneous
  Country: FR (occurrence: FR)
  Receive Date: 20130116
  Receipt Date: 20130116
  Transmission Date: 20140127
  Serious: Yes (Other)
  Sender: FDA-Public Use
  Company Number: FR-B.I. PHARMACEUTICALS,INC./RIDGEFIELD-2013-FF-00094FF

PATIENT
  Age: 78 Year
  Sex: Female

DRUGS (5)
  1. PRADAXA [Suspect]
     Dosage: 150 MG
     Route: 048
     Dates: start: 20121126, end: 20121216
  2. LASILIX SPECIAL [Concomitant]
     Dosage: 250 MG
     Route: 048
  3. KARDEGIC [Concomitant]
     Route: 048
     Dates: start: 20121124, end: 20121126
  4. TAREG [Concomitant]
     Dosage: 40 MG
     Route: 048
  5. ACTISKENAN [Concomitant]
     Dosage: 30 MG
     Route: 048

REACTIONS (2)
  - Prothrombin time shortened [Recovered/Resolved]
  - Activated partial thromboplastin time prolonged [Recovered/Resolved]
